FAERS Safety Report 4922566-5 (Version None)
Quarter: 2006Q1

REPORT INFORMATION
  Report Type: 
  Country: None (occurrence: None)
  Receive Date: 20060224
  Receipt Date: 20060222
  Transmission Date: 20060701
  Serious: Yes (Other)
  Sender: FDA-Public Use
  Company Number: US-GLAXOSMITHKLINE-A0594801A

PATIENT
  Age: 81 Year
  Sex: Male

DRUGS (7)
  1. COREG [Suspect]
     Indication: DRUG USE FOR UNKNOWN INDICATION
     Route: 048
     Dates: start: 20050801
  2. LOPRESSOR [Concomitant]
  3. DIAVAN [Concomitant]
  4. GLYBURIDE [Concomitant]
  5. METFORMIN [Concomitant]
  6. ZOCOR [Concomitant]
  7. OMEPRAZOLE [Concomitant]

REACTIONS (2)
  - CARDIAC FAILURE [None]
  - SKIN ODOUR ABNORMAL [None]
